FAERS Safety Report 25441475 (Version 1)
Quarter: 2025Q2

REPORT INFORMATION
  Report Type: Spontaneous
  Country: ES (occurrence: ES)
  Receive Date: 20250616
  Receipt Date: 20250616
  Transmission Date: 20250717
  Serious: Yes (Hospitalization)
  Sender: DR REDDYS
  Company Number: None

PATIENT
  Age: 64 Year
  Sex: Female

DRUGS (9)
  1. DAPTOMYCIN [Suspect]
     Active Substance: DAPTOMYCIN
     Indication: Abdominal infection
     Dosage: 800 MILLIGRAMS (1.6 VIAL) EVERY 24 HOURS
     Route: 042
     Dates: start: 20240127, end: 20240206
  2. MEROPENEM [Suspect]
     Active Substance: MEROPENEM
     Indication: Abdominal infection
     Dosage: 1 GRAM (1 VIAL) EVERY 8 HOURS
     Route: 042
     Dates: start: 20240128, end: 20240206
  3. ACETAMINOPHEN [Concomitant]
     Active Substance: ACETAMINOPHEN
     Indication: Pyrexia
     Dosage: 1 GRAM (100 MILLILITERS)?EVERY 8 HOURS
     Route: 042
     Dates: start: 20240126, end: 20240218
  4. ENOXAPARIN SODIUM [Concomitant]
     Active Substance: ENOXAPARIN SODIUM
     Indication: Prophylaxis
     Dosage: 40 MILLIGRAMS (1 SYRINGE)(CHARGED) AT 20 HOURS
     Route: 058
     Dates: start: 20240127, end: 20240226
  5. OMEPRAZOLE [Concomitant]
     Active Substance: OMEPRAZOLE
     Indication: Prophylaxis
     Dosage: 20 MILIGRAM(1 CAPSULE) CADA 24H
     Route: 048
     Dates: start: 20240126
  6. Amitriptilina 25 mg capsula [Concomitant]
     Indication: Fibromyalgia
     Dosage: 25 MILIGRAM (1 CAPSULE) EVERY 24 HOURS
     Route: 048
     Dates: start: 20240127
  7. Lormetazepam 1 mg comprimido [Concomitant]
     Indication: Depression
     Dosage: 2 MILIGRAM (2 COMP) AT 23 HOURS
     Route: 048
     Dates: start: 20110315
  8. PIPERACILLIN SODIUM\TAZOBACTAM SODIUM [Concomitant]
     Active Substance: PIPERACILLIN SODIUM\TAZOBACTAM SODIUM
     Indication: Abdominal infection
     Dosage: 4 GRAMO (1 VIAL)ABOUT 6AM;
     Route: 042
     Dates: start: 20240127, end: 20240128
  9. CEFTRIAXONE [Concomitant]
     Active Substance: CEFTRIAXONE
     Indication: Abdominal infection
     Dosage: 2 GRAM (1 VIAL) AT 9 HOURS
     Route: 042
     Dates: start: 20240126, end: 20240126

REACTIONS (1)
  - Hepatic cytolysis [Recovered/Resolved]

NARRATIVE: CASE EVENT DATE: 20240129
